FAERS Safety Report 11631738 (Version 1)
Quarter: 2015Q4

REPORT INFORMATION
  Report Type: Spontaneous
  Country: CH (occurrence: CH)
  Receive Date: 20151015
  Receipt Date: 20151015
  Transmission Date: 20160304
  Serious: Yes (Other)
  Sender: FDA-Public Use
  Company Number: CH-PFIZER INC-2015335167

PATIENT
  Sex: Male
  Weight: 3.78 kg

DRUGS (5)
  1. LYRICA [Suspect]
     Active Substance: PREGABALIN
     Dosage: 50 MG, 3X/DAY
     Route: 064
  2. FLOXYFRAL [Suspect]
     Active Substance: FLUVOXAMINE
     Dosage: 150 MG, 1X/DAY
     Route: 064
  3. TRANDATE [Suspect]
     Active Substance: LABETALOL HYDROCHLORIDE
     Indication: HYPERTENSION
     Dosage: 50 MG, 1X/DAY
     Route: 064
     Dates: start: 2014
  4. CONCERTA [Suspect]
     Active Substance: METHYLPHENIDATE HYDROCHLORIDE
     Dosage: 18 MG, 1X/DAY
     Route: 064
     Dates: start: 2014, end: 201411
  5. BELOC ZOK [Suspect]
     Active Substance: METOPROLOL SUCCINATE
     Indication: HYPERTENSION
     Dosage: 25 MG, 1X/DAY
     Route: 064
     Dates: end: 2014

REACTIONS (2)
  - Neonatal behavioural syndrome [Recovered/Resolved]
  - Maternal exposure during pregnancy [Recovered/Resolved]

NARRATIVE: CASE EVENT DATE: 20140826
